FAERS Safety Report 23346638 (Version 1)
Quarter: 2023Q4

REPORT INFORMATION
  Report Type: Spontaneous
  Country: US (occurrence: US)
  Receive Date: 20231228
  Receipt Date: 20231228
  Transmission Date: 20240110
  Serious: Yes (Other)
  Sender: FDA-Public Use
  Company Number: US-ABBVIE-5562653

PATIENT

DRUGS (2)
  1. SYNTHROID [Suspect]
     Active Substance: LEVOTHYROXINE SODIUM
     Indication: Product used for unknown indication
  2. CENTAURIUM [Concomitant]
     Indication: Product used for unknown indication
     Dates: start: 1993

REACTIONS (5)
  - Medical device implantation [Unknown]
  - Drug hypersensitivity [Unknown]
  - Gluten sensitivity [Unknown]
  - Medical device removal [Unknown]
  - Gait disturbance [Unknown]

NARRATIVE: CASE EVENT DATE: 20230101
